FAERS Safety Report 9424311 (Version 1)
Quarter: 2013Q3

REPORT INFORMATION
  Report Type: Spontaneous
  Country: US (occurrence: None)
  Receive Date: 20130726
  Receipt Date: 20130726
  Transmission Date: 20140515
  Serious: Yes (Hospitalization)
  Sender: FDA-Public Use
  Company Number: None

PATIENT
  Age: 69 Year
  Sex: Male
  Weight: 73 kg

DRUGS (8)
  1. BEVACIZUMAB [Suspect]
  2. CARBOPLATIN [Suspect]
  3. PACLITAXEL(TAXOL) [Suspect]
     Dosage: 175 MG/M2 IV EVERY 21 DAYS
  4. ASPIRIN [Concomitant]
  5. DILTIAZEM HCL [Concomitant]
  6. ISOSORBIDE MONONITRAE CR [Concomitant]
  7. LISINOPRIL [Concomitant]
  8. NICOTINE TRANSDERMAL SYSTEM [Concomitant]

REACTIONS (8)
  - Haematemesis [None]
  - Syncope [None]
  - Urinary incontinence [None]
  - Hypotension [None]
  - Oesophageal ulcer [None]
  - Duodenal ulcer [None]
  - Haemoglobin decreased [None]
  - Haemorrhage [None]
